FAERS Safety Report 5833905-5 (Version None)
Quarter: 2008Q3

REPORT INFORMATION
  Report Type: 
  Country: None (occurrence: None)
  Receive Date: 20080805
  Receipt Date: 20080802
  Transmission Date: 20090109
  Serious: Yes (Death, Hospitalization)
  Sender: FDA-Public Use
  Company Number: B0458991A

PATIENT
  Age: 17 Year
  Sex: Female
  Weight: 52 kg

DRUGS (5)
  1. LAMOTRIGINE [Suspect]
     Indication: EPILEPSY
     Route: 048
     Dates: start: 20060130
  2. CINNARIZINE [Concomitant]
     Indication: VOMITING
     Dosage: 15MG THREE TIMES PER DAY
     Route: 048
     Dates: start: 20030101
  3. CLOBAZAM [Concomitant]
     Indication: EPILEPSY
     Route: 048
     Dates: start: 20040101
  4. ETHINYLOESTRADIOL [Concomitant]
     Indication: ORAL CONTRACEPTION
     Route: 048
     Dates: start: 20040101
  5. VALPROATE SODIUM [Concomitant]
     Indication: EPILEPSY
     Dosage: 500MG THREE TIMES PER DAY
     Route: 048
     Dates: start: 20050101

REACTIONS (12)
  - ACUTE HEPATIC FAILURE [None]
  - BLOOD PRESSURE IMMEASURABLE [None]
  - HEPATIC NECROSIS [None]
  - JAUNDICE [None]
  - MALAISE [None]
  - PULMONARY CONGESTION [None]
  - PULMONARY OEDEMA [None]
  - PULSE PRESSURE DECREASED [None]
  - PYREXIA [None]
  - RASH GENERALISED [None]
  - RENAL NECROSIS [None]
  - VOMITING [None]
